FAERS Safety Report 20571050 (Version 2)
Quarter: 2022Q1

REPORT INFORMATION
  Report Type: Spontaneous
  Country: SE (occurrence: SE)
  Receive Date: 20220309
  Receipt Date: 20220316
  Transmission Date: 20220423
  Serious: Yes (Hospitalization)
  Sender: FDA-Public Use
  Company Number: None

PATIENT
  Age: 50 Year
  Sex: Male
  Weight: 88 kg

DRUGS (1)
  1. IMRALDI [Interacting]
     Active Substance: ADALIMUMAB
     Indication: Rheumatoid arthritis
     Dosage: 40 MG ONE SYRINGE EVERY 14 DAYS
     Route: 058
     Dates: start: 20190903, end: 20220131

REACTIONS (5)
  - Myalgia [Recovering/Resolving]
  - Arthralgia [Recovering/Resolving]
  - Arthritis reactive [Recovering/Resolving]
  - Drug interaction [Recovering/Resolving]
  - COVID-19 immunisation [Recovering/Resolving]

NARRATIVE: CASE EVENT DATE: 20220124
